FAERS Safety Report 7326620-2 (Version None)
Quarter: 2011Q1

REPORT INFORMATION
  Report Type: 
  Country: None (occurrence: None)
  Receive Date: 20110302
  Receipt Date: 20110225
  Transmission Date: 20110831
  Serious: Yes (Other)
  Sender: FDA-Public Use
  Company Number: PHHO2011TR03698

PATIENT
  Sex: Male
  Weight: 55 kg

DRUGS (3)
  1. EVEROLIMUS [Suspect]
     Indication: METASTATIC RENAL CELL CARCINOMA
     Dosage: UNK
     Route: 048
     Dates: start: 20110125, end: 20110126
  2. FAMOTIDINE [Concomitant]
     Dosage: UNK
  3. CONFORTID [Concomitant]
     Dosage: UNK

REACTIONS (2)
  - GASTROINTESTINAL HAEMORRHAGE [None]
  - CONCOMITANT DISEASE PROGRESSION [None]
